FAERS Safety Report 8369885-0 (Version None)
Quarter: 2012Q1

REPORT INFORMATION
  Report Type: 
  Country: None (occurrence: None)
  Receive Date: 20120323
  Receipt Date: 20110318
  Transmission Date: 20120608
  Serious: Yes (Disabling, Other)
  Sender: FDA-Public Use
  Company Number: 163-21880-11012155

PATIENT
  Age: 74 Year
  Sex: Male

DRUGS (4)
  1. PLAVIX [Concomitant]
  2. PREDNISONE TAB [Concomitant]
  3. REVLIMID [Suspect]
     Indication: MYELODYSPLASTIC SYNDROME
     Dosage: 10 MG, D1-21 Q 28 DAYS, PO 5 MG, 1 IN 1 D, PO
     Route: 048
     Dates: start: 20110120
  4. REVLIMID [Suspect]
     Indication: MYELODYSPLASTIC SYNDROME
     Dosage: 10 MG, D1-21 Q 28 DAYS, PO 5 MG, 1 IN 1 D, PO
     Route: 048
     Dates: start: 20101229

REACTIONS (4)
  - FATIGUE [None]
  - PLATELET COUNT DECREASED [None]
  - OROPHARYNGEAL PAIN [None]
  - HEADACHE [None]
